FAERS Safety Report 8862040 (Version 1)
Quarter: 2012Q4

REPORT INFORMATION
  Report Type: 
  Country: US (occurrence: US)
  Receive Date: 20121025
  Receipt Date: 20121025
  Transmission Date: 20130627
  Serious: No
  Sender: FDA-Public Use
  Company Number: US-TARO-2012P1050563

PATIENT
  Age: 87 Year
  Sex: Male
  Weight: 72.58 kg

DRUGS (5)
  1. CLOTRIMAZOLE [Suspect]
     Indication: TINEA PEDIS
     Route: 061
     Dates: start: 20111128, end: 201202
  2. SPIRIVA [Concomitant]
  3. FORADIL [Concomitant]
  4. FINASTERIDE [Concomitant]
  5. ASPIRIN  81MG [Concomitant]

REACTIONS (1)
  - Nail discolouration [Recovering/Resolving]
